FAERS Safety Report 10102649 (Version 2)
Quarter: 2014Q2

REPORT INFORMATION
  Report Type: Other
  Country: US (occurrence: US)
  Receive Date: 20140424
  Receipt Date: 20140627
  Transmission Date: 20141212
  Serious: Yes (Hospitalization, Other)
  Sender: FDA-Public Use
  Company Number: US-GSKPPD-2014GSK000212

PATIENT
  Age: 55 Year
  Sex: Male
  Weight: 71 kg

DRUGS (16)
  1. AVANDIA [Suspect]
     Indication: DIABETES MELLITUS
     Dosage: AVANDIA WAS NOT LISTED AMONG THE PATIENTS ADMISSION DISCHARGE RECORDS.
     Route: 048
  2. MAVIK [Concomitant]
     Route: 048
  3. LOPRESSOR [Concomitant]
     Route: 048
  4. SPIRONOLACTONE [Concomitant]
     Route: 048
  5. TENORMIN [Concomitant]
     Route: 048
  6. VASOTEC [Concomitant]
     Route: 048
  7. ASPIRIN [Concomitant]
     Route: 048
  8. PLAVIX [Concomitant]
     Route: 048
  9. COUMADIN [Concomitant]
     Dates: start: 20020712
  10. AMIODARONE [Concomitant]
     Dates: start: 20020712
  11. TORPOL XL [Concomitant]
     Route: 048
  12. LASIX [Concomitant]
     Route: 048
  13. DIGOXIN [Concomitant]
     Route: 048
  14. LOVENOX [Concomitant]
     Route: 058
  15. CLONIDINE [Concomitant]
     Dates: end: 200907
  16. AMLODIPINE [Concomitant]
     Dates: start: 20111110, end: 20111120

REACTIONS (1)
  - Cerebrovascular accident [Recovered/Resolved]
